FAERS Safety Report 22241141 (Version 2)
Quarter: 2023Q2

REPORT INFORMATION
  Report Type: Report from Study
  Country: US (occurrence: US)
  Receive Date: 20230421
  Receipt Date: 20230424
  Transmission Date: 20230722
  Serious: Yes (Other)
  Sender: FDA-Public Use
  Company Number: US-002147023-NVSC2023US086133

PATIENT
  Sex: Female
  Weight: 99.79 kg

DRUGS (32)
  1. CLOBETASOL [Suspect]
     Active Substance: CLOBETASOL
     Indication: Psoriasis
     Dosage: 0.05 %
     Route: 061
  2. CLOBETASOL [Suspect]
     Active Substance: CLOBETASOL
     Indication: Psoriatic arthropathy
  3. FLUOCINONIDE [Suspect]
     Active Substance: FLUOCINONIDE
     Indication: Psoriasis
     Dosage: 0.05 %
     Route: 061
  4. FLUOCINONIDE [Suspect]
     Active Substance: FLUOCINONIDE
     Indication: Psoriatic arthropathy
  5. CLOTRIMAZOLE [Suspect]
     Active Substance: CLOTRIMAZOLE
     Indication: Psoriasis
     Dosage: 1 %
     Route: 061
  6. CLOTRIMAZOLE [Suspect]
     Active Substance: CLOTRIMAZOLE
     Indication: Psoriatic arthropathy
  7. LOSARTAN [Suspect]
     Active Substance: LOSARTAN
     Indication: Psoriasis
     Dosage: 100 MG
     Route: 048
  8. LOSARTAN [Suspect]
     Active Substance: LOSARTAN
     Indication: Psoriatic arthropathy
     Dosage: 20 MG
     Route: 048
  9. METFORMIN [Suspect]
     Active Substance: METFORMIN HYDROCHLORIDE
     Indication: Psoriatic arthropathy
     Dosage: 500 MG
     Route: 048
  10. METFORMIN [Suspect]
     Active Substance: METFORMIN HYDROCHLORIDE
     Indication: Psoriasis
  11. METOPROLOL [Suspect]
     Active Substance: METOPROLOL
     Indication: Psoriasis
     Dosage: 25 MG
     Route: 065
  12. METOPROLOL [Suspect]
     Active Substance: METOPROLOL
     Indication: Psoriatic arthropathy
  13. ATORVASTATIN [Suspect]
     Active Substance: ATORVASTATIN
     Indication: Psoriasis
     Dosage: 40 MG
     Route: 065
  14. ATORVASTATIN [Suspect]
     Active Substance: ATORVASTATIN
     Indication: Psoriatic arthropathy
  15. LASIX [Suspect]
     Active Substance: FUROSEMIDE
     Indication: Psoriasis
     Dosage: 20 MG
     Route: 048
  16. LASIX [Suspect]
     Active Substance: FUROSEMIDE
     Indication: Psoriatic arthropathy
  17. ASPIRIN [Suspect]
     Active Substance: ASPIRIN
     Indication: Product used for unknown indication
     Dosage: UNK
     Route: 065
  18. HYDROCHLOROTHIAZIDE [Suspect]
     Active Substance: HYDROCHLOROTHIAZIDE
     Indication: Psoriasis
     Dosage: 12.5 MG
     Route: 065
  19. HYDROCHLOROTHIAZIDE [Suspect]
     Active Substance: HYDROCHLOROTHIAZIDE
     Indication: Psoriatic arthropathy
  20. IRON [Suspect]
     Active Substance: IRON
     Indication: Psoriasis
     Dosage: UNK
     Route: 065
  21. IRON [Suspect]
     Active Substance: IRON
     Indication: Psoriatic arthropathy
  22. VITAMIN C [Suspect]
     Active Substance: ASCORBIC ACID
     Indication: Psoriasis
     Dosage: UNK
     Route: 065
  23. VITAMIN C [Suspect]
     Active Substance: ASCORBIC ACID
     Indication: Psoriatic arthropathy
  24. METOPROLOL SUCCINATE [Suspect]
     Active Substance: METOPROLOL SUCCINATE
     Indication: Psoriasis
     Dosage: 12.5 MG
     Route: 065
  25. METOPROLOL SUCCINATE [Suspect]
     Active Substance: METOPROLOL SUCCINATE
     Indication: Psoriatic arthropathy
  26. ASPIRIN [Suspect]
     Active Substance: ASPIRIN
     Indication: Psoriasis
     Dosage: 81 MG
     Route: 065
  27. ASPIRIN [Suspect]
     Active Substance: ASPIRIN
     Indication: Psoriatic arthropathy
  28. OTEZLA [Concomitant]
     Active Substance: APREMILAST
     Indication: Psoriatic arthropathy
     Dosage: UNK
     Route: 065
  29. TAR [Concomitant]
     Active Substance: TAR
     Indication: Product used for unknown indication
     Dosage: UNK
     Route: 065
  30. SELENIUM [Concomitant]
     Active Substance: SELENIUM
     Indication: Product used for unknown indication
     Dosage: UNK
     Route: 065
  31. ZINC [Concomitant]
     Active Substance: ZINC
     Indication: Product used for unknown indication
     Dosage: UNK
     Route: 065
  32. UNSPECIFIED INGREDIENT [Concomitant]
     Active Substance: UNSPECIFIED INGREDIENT
     Indication: Product used for unknown indication
     Dosage: UNK
     Route: 065

REACTIONS (13)
  - Syncope [Unknown]
  - Neoplasm skin [Unknown]
  - Lentigo [Unknown]
  - Large intestine polyp [Unknown]
  - Melanocytic naevus [Unknown]
  - Seborrhoeic keratosis [Unknown]
  - Ecchymosis [Unknown]
  - Angiopathy [Unknown]
  - Fall [Unknown]
  - Skin lesion [Unknown]
  - Spider naevus [Unknown]
  - Drug ineffective [Unknown]
  - Product use in unapproved indication [Unknown]
